FAERS Safety Report 6839464-2 (Version None)
Quarter: 2010Q3

REPORT INFORMATION
  Report Type: 
  Country: None (occurrence: None)
  Receive Date: 20100714
  Receipt Date: 20090707
  Transmission Date: 20110219
  Serious: No
  Sender: FDA-Public Use
  Company Number: A0795740A

PATIENT
  Age: 61 Year
  Sex: Female

DRUGS (5)
  1. FLOVENT [Suspect]
     Indication: ASTHMA
     Dosage: 2SPR TWICE PER DAY
     Route: 055
     Dates: start: 20090630
  2. ADVAIR DISKUS 100/50 [Suspect]
     Indication: ASTHMA
     Dosage: 1PUFF TWICE PER DAY
     Route: 055
     Dates: start: 20050101, end: 20080101
  3. SIMVASTATIN [Concomitant]
  4. ESTROPIPATE [Concomitant]
  5. ALOPURINOL [Concomitant]

REACTIONS (1)
  - DYSPHONIA [None]
